FAERS Safety Report 9634596 (Version 1)
Quarter: 2013Q4

REPORT INFORMATION
  Report Type: Report from Study
  Country: GR (occurrence: GR)
  Receive Date: 20131021
  Receipt Date: 20131021
  Transmission Date: 20140711
  Serious: Yes (Other)
  Sender: FDA-Public Use
  Company Number: GR-ROCHE-1289946

PATIENT
  Age: 55 Year
  Sex: Female
  Weight: 95 kg

DRUGS (5)
  1. ROACTEMRA [Suspect]
     Indication: RHEUMATOID ARTHRITIS
     Route: 042
     Dates: start: 2010
  2. METHOTREXATE [Concomitant]
     Indication: RHEUMATOID ARTHRITIS
     Route: 048
     Dates: start: 2003
  3. NEXIUM [Concomitant]
     Route: 048
     Dates: start: 2008
  4. SYMBICORT [Concomitant]
     Indication: ASTHMA
     Route: 065
     Dates: start: 2008
  5. AEROLIN [Concomitant]
     Indication: ASTHMA
     Route: 065
     Dates: start: 2006

REACTIONS (2)
  - Hernia [Unknown]
  - Blood pressure abnormal [Unknown]
